FAERS Safety Report 8927710 (Version 1)
Quarter: 2012Q4

REPORT INFORMATION
  Report Type: 
  Country: NZ (occurrence: NZ)
  Receive Date: 20121126
  Receipt Date: 20121126
  Transmission Date: 20130627
  Serious: No
  Sender: FDA-Public Use
  Company Number: NZ-SANOFI-AVENTIS-2012SA082861

PATIENT
  Age: 30 Year
  Sex: Male

DRUGS (3)
  1. ARAVA [Suspect]
     Indication: DRUG USE FOR UNKNOWN INDICATION
     Route: 048
  2. METHOTREXATE [Concomitant]
     Indication: RHEUMATOID ARTHRITIS
  3. HUMIRA [Concomitant]
     Indication: RHEUMATOID ARTHRITIS

REACTIONS (1)
  - Exposure via father [Unknown]
